FAERS Safety Report 16005372 (Version 2)
Quarter: 2019Q1

REPORT INFORMATION
  Report Type: Spontaneous
  Country: US (occurrence: US)
  Receive Date: 20190226
  Receipt Date: 20190301
  Transmission Date: 20190418
  Serious: No
  Sender: FDA-Public Use
  Company Number: US-PFIZER INC-2019072884

PATIENT
  Age: 5 Year
  Sex: Female
  Weight: 13.9 kg

DRUGS (4)
  1. TOPOTECAN HYDROCHLORIDE. [Suspect]
     Active Substance: TOPOTECAN HYDROCHLORIDE
     Indication: NEUROBLASTOMA RECURRENT
     Dosage: UNK
     Route: 042
  2. IBRANCE [Suspect]
     Active Substance: PALBOCICLIB
     Indication: NEUROBLASTOMA RECURRENT
     Dosage: 37.5 MG, CYCLIC [HALF OF THAT DOSE SO, 37.5/ ON DAYS 1 TO 14 DAILY WITH 7 DAYS OFF ON A 21 DAYS CYCL
  3. VINCRISTINE SULFATE. [Suspect]
     Active Substance: VINCRISTINE SULFATE
     Indication: NEUROBLASTOMA RECURRENT
     Dosage: UNK
     Route: 042
  4. CYTOXAN [Suspect]
     Active Substance: CYCLOPHOSPHAMIDE
     Indication: NEUROBLASTOMA RECURRENT
     Dosage: UNK
     Route: 042

REACTIONS (3)
  - Malnutrition [Unknown]
  - Catecholamines urine increased [Unknown]
  - Product use in unapproved indication [Unknown]
